FAERS Safety Report 25963855 (Version 1)
Quarter: 2025Q4

REPORT INFORMATION
  Report Type: Spontaneous
  Country: US (occurrence: US)
  Receive Date: 20251027
  Receipt Date: 20251027
  Transmission Date: 20260117
  Serious: Yes (Other)
  Sender: BAYER HEALTHCARE PHARMACEUTICALS INC.
  Company Number: US-BAYER-2025A139813

PATIENT
  Age: 90 Year
  Sex: Female

DRUGS (1)
  1. NUBEQA [Suspect]
     Active Substance: DAROLUTAMIDE
     Dosage: 600 MG, BID
     Dates: start: 20250702

REACTIONS (2)
  - Prostatic specific antigen increased [None]
  - Drug ineffective [None]

NARRATIVE: CASE EVENT DATE: 20251019
